FAERS Safety Report 9862242 (Version 2)
Quarter: 2014Q1

REPORT INFORMATION
  Report Type: Spontaneous
  Country: GB (occurrence: GB)
  Receive Date: 20140203
  Receipt Date: 20140203
  Transmission Date: 20141002
  Serious: Yes (Other)
  Sender: FDA-Public Use
  Company Number: GB-ABBVIE-13P-167-1136272-00

PATIENT
  Sex: Male

DRUGS (1)
  1. PROSTAP 3 [Suspect]
     Indication: PROSTATE CANCER
     Route: 058
     Dates: start: 2012

REACTIONS (1)
  - Hallucination [Unknown]
